FAERS Safety Report 22388252 (Version 4)
Quarter: 2024Q4

REPORT INFORMATION
  Report Type: Report from Study
  Country: US (occurrence: US)
  Receive Date: 20230531
  Receipt Date: 20241128
  Transmission Date: 20250114
  Serious: Yes (Hospitalization, Other)
  Sender: NOVARTIS
  Company Number: US-002147023-NVSC2023US119728

PATIENT
  Sex: Female

DRUGS (1)
  1. COSENTYX [Suspect]
     Active Substance: SECUKINUMAB
     Indication: Product used for unknown indication
     Dosage: UNK, INJECTION NOS
     Route: 050

REACTIONS (4)
  - Sepsis [Unknown]
  - Pneumonia [Unknown]
  - Psoriasis [Unknown]
  - Condition aggravated [Unknown]
